FAERS Safety Report 21059237 (Version 1)
Quarter: 2022Q3

REPORT INFORMATION
  Report Type: Spontaneous
  Country: US (occurrence: US)
  Receive Date: 20220708
  Receipt Date: 20220708
  Transmission Date: 20221027
  Serious: Yes (Death, Other)
  Sender: FDA-Public Use
  Company Number: US-OTSUKA-2022_035125

PATIENT
  Age: 22 Month
  Sex: Male

DRUGS (1)
  1. BUSULFAN [Suspect]
     Active Substance: BUSULFAN
     Indication: Neuroblastoma
     Dosage: 150 MG
     Route: 065

REACTIONS (5)
  - Respiratory failure [Fatal]
  - Alveolar proteinosis [Unknown]
  - Pseudomonas infection [Unknown]
  - Interstitial lung disease [Unknown]
  - Product use in unapproved indication [Unknown]
